FAERS Safety Report 10464589 (Version 2)
Quarter: 2014Q4

REPORT INFORMATION
  Report Type: Spontaneous
  Country: US (occurrence: US)
  Receive Date: 20140919
  Receipt Date: 20141003
  Transmission Date: 20150528
  Serious: Yes (Other)
  Sender: FDA-Public Use
  Company Number: US-PERRIGO-14US008953

PATIENT
  Age: 55 Year
  Sex: Female
  Weight: 90.7 kg

DRUGS (2)
  1. MINOXIDIL FOR WOMEN [Suspect]
     Active Substance: MINOXIDIL
     Indication: ALOPECIA
     Dosage: 1 ML, QD, TWO WEEKS ON AND TWO WEEKS OFF, PRN
     Route: 061
     Dates: start: 201401, end: 20140531
  2. MINOXIDIL FOR WOMEN [Suspect]
     Active Substance: MINOXIDIL
     Dosage: 1 ML, QD
     Route: 061
     Dates: start: 20140601, end: 201406

REACTIONS (4)
  - Skin cancer [Unknown]
  - Inappropriate schedule of drug administration [Recovered/Resolved]
  - Drug ineffective [Unknown]
  - Papilloma [Recovering/Resolving]

NARRATIVE: CASE EVENT DATE: 201401
